FAERS Safety Report 9254163 (Version 1)
Quarter: 2013Q2

REPORT INFORMATION
  Report Type: Spontaneous
  Country: US (occurrence: None)
  Receive Date: 20130422
  Receipt Date: 20130422
  Transmission Date: 20140414
  Serious: Yes (Hospitalization)
  Sender: FDA-Public Use
  Company Number: None

PATIENT
  Age: 62 Year
  Sex: Male
  Weight: 65.5 kg

DRUGS (6)
  1. DOXORUBICIN HYDROCHLORIDE [Suspect]
  2. ETOPOSIDE (VP-16) [Suspect]
  3. METHOTREXATE [Suspect]
  4. PREDNISONE [Suspect]
  5. RITUXIMAB (MOAB C2B8 ANTI CD20, CHIMERIC) [Suspect]
  6. VINCRISTINE SULFATE [Suspect]

REACTIONS (4)
  - Headache [None]
  - Atrial fibrillation [None]
  - Electrocardiogram ST segment depression [None]
  - Subdural haematoma [None]
